FAERS Safety Report 11719896 (Version 1)
Quarter: 2015Q4

REPORT INFORMATION
  Report Type: Report from Study
  Country: FR (occurrence: FR)
  Receive Date: 20151110
  Receipt Date: 20151110
  Transmission Date: 20160304
  Serious: Yes (Hospitalization)
  Sender: FDA-Public Use
  Company Number: FR-ROCHE-1654946

PATIENT
  Sex: Female

DRUGS (20)
  1. IMOVANE [Concomitant]
     Active Substance: ZOPICLONE
     Route: 065
  2. DUROGESIC [Concomitant]
     Active Substance: FENTANYL
  3. LOVENOX [Concomitant]
     Active Substance: ENOXAPARIN SODIUM
     Dosage: 0.4 ONCE PER DAY
     Route: 065
  4. PRETERAX [Concomitant]
     Active Substance: INDAPAMIDE\PERINDOPRIL
     Route: 065
  5. AMLODIPINE [Concomitant]
     Active Substance: AMLODIPINE BESYLATE
  6. NICERGOLINE [Concomitant]
     Active Substance: NICERGOLINE
     Route: 065
  7. INEXIUM [Concomitant]
     Active Substance: ESOMEPRAZOLE
     Dosage: 40 ONCE PER DAY
     Route: 065
  8. TEMESTA (FRANCE) [Concomitant]
     Route: 065
  9. PRAVASTATIN [Concomitant]
     Active Substance: PRAVASTATIN\PRAVASTATIN SODIUM
  10. URBANYL [Concomitant]
     Active Substance: CLOBAZAM
  11. TOCILIZUMAB [Suspect]
     Active Substance: TOCILIZUMAB
     Dosage: PATIENT RECEIVED THE INFUSION IN FOLLOWING DAYS : 07/JAN/2013 (4 MG/KG, IE 240 MG), 05/FEB/2013 (4MG
     Route: 042
     Dates: start: 20121207
  12. RIVOTRIL [Concomitant]
     Active Substance: CLONAZEPAM
     Dosage: 7 DROPS IN THE EVENING
     Route: 065
  13. LERCAN [Concomitant]
     Active Substance: LERCANIDIPINE
     Route: 065
  14. TOCILIZUMAB [Suspect]
     Active Substance: TOCILIZUMAB
     Indication: RHEUMATOID ARTHRITIS
     Dosage: PATIENT RECEIVED THE INFUSION IN FOLLOWING DAYS 06/MAY/2011 (8 MG/KG, IE 480 MG), 07/JUN/2011 (8 MG/
     Route: 042
     Dates: start: 20110405
  15. TANAKAN [Concomitant]
     Active Substance: GINKGO
     Route: 065
  16. RISPERDAL [Concomitant]
     Active Substance: RISPERIDONE
  17. GABAPENTINE [Concomitant]
     Active Substance: GABAPENTIN
  18. CONTRAMAL [Concomitant]
     Active Substance: TRAMADOL HYDROCHLORIDE
     Dosage: 200 AT 2.25 TABLETS PER DAY
     Route: 065
  19. SOTALOL. [Concomitant]
     Active Substance: SOTALOL
     Route: 065
  20. CONTRAMAL LP [Concomitant]
     Active Substance: TRAMADOL HYDROCHLORIDE
     Dosage: 200 TWICE PER DAY;
     Route: 065

REACTIONS (21)
  - Motor dysfunction [Recovered/Resolved]
  - Cerebral haematoma [Recovered/Resolved]
  - Fall [Unknown]
  - Nocturnal dyspnoea [Recovered/Resolved]
  - General physical health deterioration [Recovered/Resolved]
  - Loss of consciousness [Recovered/Resolved]
  - Pneumonia aspiration [Not Recovered/Not Resolved]
  - Hypoxia [Recovered/Resolved]
  - Hypercapnia [Recovered/Resolved]
  - Escherichia urinary tract infection [Recovered/Resolved]
  - Head injury [Recovered/Resolved]
  - Respiratory distress [Recovered/Resolved]
  - Lung infection [Recovered/Resolved]
  - Speech disorder [Recovered/Resolved]
  - Hypoventilation [Recovered/Resolved]
  - Dehydration [Recovered/Resolved]
  - Epilepsy [Recovered/Resolved]
  - Superinfection bacterial [Recovered/Resolved]
  - Acute kidney injury [Recovered/Resolved]
  - Hypotension [Recovered/Resolved]
  - Anuria [Recovered/Resolved]

NARRATIVE: CASE EVENT DATE: 20120302
